FAERS Safety Report 9879828 (Version 1)
Quarter: 2014Q1

REPORT INFORMATION
  Report Type: Spontaneous
  Country: NZ (occurrence: NZ)
  Receive Date: 20140206
  Receipt Date: 20140206
  Transmission Date: 20141002
  Serious: Yes (Other)
  Sender: FDA-Public Use
  Company Number: PHHY2013NZ155441

PATIENT
  Age: 49 Year
  Sex: Male

DRUGS (3)
  1. CICLOSPORIN [Suspect]
     Indication: IMMUNOSUPPRESSION
  2. MYCOPHENOLATE [Suspect]
     Indication: IMMUNOSUPPRESSION
  3. PREDNISOLONE [Suspect]
     Indication: IMMUNOSUPPRESSION

REACTIONS (7)
  - Kidney transplant rejection [Recovering/Resolving]
  - Complications of transplanted kidney [Recovering/Resolving]
  - Diabetes mellitus [Unknown]
  - Blood glucose increased [Unknown]
  - Fatigue [Unknown]
  - Thirst [Unknown]
  - Polydipsia [Unknown]
